FAERS Safety Report 6297194-2 (Version None)
Quarter: 2009Q3

REPORT INFORMATION
  Report Type: 
  Country: None (occurrence: None)
  Receive Date: 20090804
  Receipt Date: 20090804
  Transmission Date: 20100115
  Serious: Yes (Life-Threatening)
  Sender: FDA-Public Use
  Company Number: None

PATIENT
  Age: 38 Year
  Sex: Male
  Weight: 68.0396 kg

DRUGS (2)
  1. FLUCONAZOLE [Suspect]
     Indication: ORAL FUNGAL INFECTION
     Dosage: 200MG, 4 TABS AT ONCE; 2 TABS DAILY
     Dates: start: 20090610, end: 20090625
  2. DIAZEPAM [Suspect]
     Indication: ANXIETY
     Dosage: 10 MG, 10 MG, 2 X DAY; 20 MG, BEDTIME; BEEN ON FOR YEARS

REACTIONS (3)
  - ACCIDENT [None]
  - DRUG INTERACTION [None]
  - LOSS OF CONSCIOUSNESS [None]
